FAERS Safety Report 5878347-1 (Version None)
Quarter: 2008Q3

REPORT INFORMATION
  Report Type: 
  Country: None (occurrence: None)
  Receive Date: 20080911
  Receipt Date: 20080902
  Transmission Date: 20090109
  Serious: Yes (Hospitalization)
  Sender: FDA-Public Use
  Company Number: PL-SANOFI-SYNTHELABO-A01200806689

PATIENT
  Age: 70 Year
  Sex: Female

DRUGS (12)
  1. METFORMIN [Concomitant]
     Indication: DRUG USE FOR UNKNOWN INDICATION
     Dosage: UNK
     Route: 065
  2. ATORVASTATIN CALCIUM [Concomitant]
     Indication: DRUG USE FOR UNKNOWN INDICATION
     Dosage: UNK
     Route: 065
  3. AMLODIPINE [Concomitant]
     Indication: DRUG USE FOR UNKNOWN INDICATION
     Dosage: UNK
     Route: 065
  4. INDAPAMIDE [Concomitant]
     Indication: DRUG USE FOR UNKNOWN INDICATION
     Dosage: UNK
     Route: 065
  5. RAMIPRIL [Concomitant]
     Indication: DRUG USE FOR UNKNOWN INDICATION
     Dosage: UNK
     Route: 065
  6. BISOPROLOL FUMARATE [Concomitant]
     Indication: DRUG USE FOR UNKNOWN INDICATION
     Dosage: UNK
     Route: 065
  7. ACETYLSALICYLIC ACID SRT [Suspect]
     Indication: STENT PLACEMENT
     Route: 065
  8. ACETYLSALICYLIC ACID SRT [Suspect]
     Indication: CORONARY ARTERY DISEASE
     Route: 065
  9. ACETYLSALICYLIC ACID SRT [Suspect]
     Route: 065
  10. ACETYLSALICYLIC ACID SRT [Suspect]
     Route: 065
  11. ZYLLT [Suspect]
     Indication: STENT PLACEMENT
     Dosage: 300 MG LOADING DOSE FOLLWED BY 75 MG DAILY
     Route: 048
  12. ZYLLT [Suspect]
     Indication: CORONARY ARTERY DISEASE
     Dosage: 300 MG LOADING DOSE FOLLWED BY 75 MG DAILY
     Route: 048

REACTIONS (2)
  - DRUG RESISTANCE [None]
  - HYPERSENSITIVITY [None]
